FAERS Safety Report 6937522-5 (Version None)
Quarter: 2010Q3

REPORT INFORMATION
  Report Type: 
  Country: None (occurrence: None)
  Receive Date: 20100823
  Receipt Date: 20100823
  Transmission Date: 20110219
  Serious: Yes (Life-Threatening, Hospitalization)
  Sender: FDA-Public Use
  Company Number: None

PATIENT
  Age: 51 Year
  Sex: Female
  Weight: 106.5953 kg

DRUGS (3)
  1. INFERGEN [Suspect]
     Indication: HEPATITIS C
     Dosage: 9MCG -0.3ML- THREE TIMES A WEEK SQ
     Route: 058
     Dates: start: 20100716, end: 20100810
  2. RIBASPHERE [Suspect]
     Dosage: 200MG TWICE DAILY PO
     Route: 048
     Dates: start: 20100511, end: 20100810
  3. PROCRIT [Concomitant]

REACTIONS (3)
  - DRUG EFFECT DECREASED [None]
  - HAEMATOCRIT DECREASED [None]
  - HAEMOGLOBIN DECREASED [None]
